FAERS Safety Report 8546470-9 (Version None)
Quarter: 2012Q3

REPORT INFORMATION
  Report Type: 
  Country: None (occurrence: None)
  Receive Date: 20120727
  Receipt Date: 20120111
  Transmission Date: 20120928
  Serious: No
  Sender: FDA-Public Use
  Company Number: US-ASTRAZENECA-2012SE02380

PATIENT
  Age: 24 Year
  Sex: Female

DRUGS (5)
  1. LAMOTRIGINE [Concomitant]
  2. SEROQUEL XR [Suspect]
     Route: 048
     Dates: start: 20111208, end: 20111227
  3. CITALOPRAM HYDROBROMIDE [Concomitant]
  4. SEROQUEL XR [Suspect]
     Route: 048
     Dates: start: 20111123
  5. TRAZODONE HCL [Concomitant]

REACTIONS (1)
  - RASH GENERALISED [None]
